FAERS Safety Report 12671645 (Version 1)
Quarter: 2016Q3

REPORT INFORMATION
  Report Type: Spontaneous
  Country: US (occurrence: US)
  Receive Date: 20160822
  Receipt Date: 20160822
  Transmission Date: 20161109
  Serious: No
  Sender: FDA-Public Use
  Company Number: US-JNJFOC-20160714743

PATIENT
  Sex: Male
  Weight: 113.4 kg

DRUGS (1)
  1. INVEGA TRINZA [Suspect]
     Active Substance: PALIPERIDONE PALMITATE
     Indication: SCHIZOPHRENIA
     Route: 030
     Dates: start: 201605

REACTIONS (2)
  - Sleep disorder [Not Recovered/Not Resolved]
  - Renal pain [Recovered/Resolved]

NARRATIVE: CASE EVENT DATE: 2016
